FAERS Safety Report 18266603 (Version 2)
Quarter: 2020Q3

REPORT INFORMATION
  Report Type: Spontaneous
  Country: BR (occurrence: BR)
  Receive Date: 20200915
  Receipt Date: 20200917
  Transmission Date: 20201103
  Serious: Yes (Other)
  Sender: FDA-Public Use
  Company Number: BR-TEVA-2020-BR-1828430

PATIENT
  Age: 74 Year
  Sex: Male
  Weight: 75 kg

DRUGS (6)
  1. NESIN 25MG [Concomitant]
  2. LOSARTAN 50MG [Concomitant]
     Active Substance: LOSARTAN
  3. TEVAOXALI [Suspect]
     Active Substance: OXALIPLATIN
     Route: 042
  4. DIAMICRON 60MG [Concomitant]
  5. PURAN T4 50MCG [Concomitant]
  6. GLIFAGE 500MG [Concomitant]

REACTIONS (6)
  - Tachycardia [Recovered/Resolved]
  - Nausea [Recovered/Resolved]
  - Hyperhidrosis [Recovered/Resolved]
  - Malaise [Recovered/Resolved]
  - Blood pressure measurement [Recovered/Resolved]
  - Flushing [Recovered/Resolved]

NARRATIVE: CASE EVENT DATE: 20200902
